FAERS Safety Report 17563415 (Version 1)
Quarter: 2020Q1

REPORT INFORMATION
  Report Type: Spontaneous
  Country: US (occurrence: US)
  Receive Date: 20200319
  Receipt Date: 20200319
  Transmission Date: 20200409
  Serious: No
  Sender: FDA-Public Use
  Company Number: US-CATALYST PHARMACEUTICALS, INC-2020CAT00066

PATIENT
  Age: 73 Year
  Sex: Female
  Weight: 54.42 kg

DRUGS (4)
  1. UNSPECIFIED EYE VITAMIN [Concomitant]
  2. FIRDAPSE [Suspect]
     Active Substance: AMIFAMPRIDINE
     Dosage: 15 MG, 4X/DAY
     Route: 048
     Dates: start: 2019
  3. METOPROLOL. [Concomitant]
     Active Substance: METOPROLOL
  4. FIRDAPSE [Suspect]
     Active Substance: AMIFAMPRIDINE
     Indication: MYASTHENIC SYNDROME
     Dosage: UNK
     Route: 048
     Dates: start: 201908, end: 2019

REACTIONS (4)
  - Peripheral coldness [Not Recovered/Not Resolved]
  - Muscular weakness [Not Recovered/Not Resolved]
  - Therapeutic product effect incomplete [Not Recovered/Not Resolved]
  - Paraesthesia [Not Recovered/Not Resolved]

NARRATIVE: CASE EVENT DATE: 201908
